FAERS Safety Report 7001040-9 (Version None)
Quarter: 2010Q3

REPORT INFORMATION
  Report Type: 
  Country: None (occurrence: None)
  Receive Date: 20100920
  Receipt Date: 20071010
  Transmission Date: 20110219
  Serious: Yes (Other)
  Sender: FDA-Public Use
  Company Number: US-ASTRAZENECA-2007UW18784

PATIENT
  Age: 21576 Day
  Sex: Male
  Weight: 87.1 kg

DRUGS (7)
  1. SEROQUEL [Suspect]
     Route: 048
     Dates: start: 20040101
  2. ZYPREXA [Concomitant]
  3. LANTUS [Concomitant]
     Dosage: 20 UNITS
     Dates: start: 20060101
  4. REGULAR INSULIN [Concomitant]
     Dosage: 5 UNITS, 10 UNITS
     Dates: start: 20060101
  5. AVANDIA [Concomitant]
     Dates: start: 20060101
  6. ARICEPT [Concomitant]
     Dates: start: 20060101
  7. RISPERDAL [Concomitant]
     Dates: start: 20060101

REACTIONS (2)
  - DIABETES MELLITUS [None]
  - DIABETES MELLITUS INADEQUATE CONTROL [None]
